FAERS Safety Report 23447056 (Version 1)
Quarter: 2024Q1

REPORT INFORMATION
  Report Type: Spontaneous
  Country: US (occurrence: None)
  Receive Date: 20240126
  Receipt Date: 20240126
  Transmission Date: 20240410
  Serious: Yes (Hospitalization)
  Sender: FDA-Public Use
  Company Number: None

PATIENT
  Sex: Male
  Weight: 102.2 kg

DRUGS (1)
  1. CISPLATIN [Suspect]
     Active Substance: CISPLATIN
     Dates: end: 20211215

REACTIONS (10)
  - Nausea [None]
  - Vomiting [None]
  - Nausea [None]
  - Vomiting [None]
  - Chills [None]
  - Weight decreased [None]
  - Diarrhoea [None]
  - Hepatic steatosis [None]
  - Fibrosis [None]
  - Therapy interrupted [None]

NARRATIVE: CASE EVENT DATE: 20211219
